FAERS Safety Report 17396303 (Version 1)
Quarter: 2020Q1

REPORT INFORMATION
  Report Type: Spontaneous
  Country: US (occurrence: US)
  Receive Date: 20200210
  Receipt Date: 20200210
  Transmission Date: 20200409
  Serious: Yes (Other)
  Sender: FDA-Public Use
  Company Number: US-SA-2020SA030738

PATIENT
  Age: 91 Year
  Sex: Female
  Weight: 49 kg

DRUGS (1)
  1. AMBIEN [Suspect]
     Active Substance: ZOLPIDEM TARTRATE
     Dosage: UNK

REACTIONS (6)
  - Loss of consciousness [Unknown]
  - Wrong technique in product usage process [Unknown]
  - Insomnia [Unknown]
  - Injury [Unknown]
  - Extra dose administered [Unknown]
  - Pollakiuria [Unknown]
